FAERS Safety Report 14818247 (Version 1)
Quarter: 2018Q2

REPORT INFORMATION
  Report Type: Spontaneous
  Country: US (occurrence: US)
  Receive Date: 20180427
  Receipt Date: 20180427
  Transmission Date: 20180711
  Serious: No
  Sender: FDA-Public Use
  Company Number: US-009507513-1803USA010400

PATIENT
  Age: 16 Year
  Sex: Female

DRUGS (1)
  1. ETONOGESTREL IMPLANT- UNKNOWN [Suspect]
     Active Substance: ETONOGESTREL
     Indication: DYSMENORRHOEA
     Dosage: ONE ROD
     Route: 059

REACTIONS (3)
  - Product use in unapproved indication [Unknown]
  - Persistent genital arousal disorder [Recovered/Resolved]
  - Product use issue [Unknown]
